FAERS Safety Report 4520899-8 (Version None)
Quarter: 2004Q4

REPORT INFORMATION
  Report Type: 
  Country: None (occurrence: None)
  Receive Date: 20041203
  Receipt Date: 20041122
  Transmission Date: 20050328
  Serious: Yes (Hospitalization)
  Sender: FDA-Public Use
  Company Number: SUSI-2004-00794

PATIENT
  Age: 66 Year
  Sex: Female

DRUGS (9)
  1. PENTASA [Suspect]
     Indication: COLITIS ULCERATIVE
     Dosage: 1.5G, ORAL
     Route: 048
     Dates: end: 20041002
  2. MERCAPTOPURINE [Suspect]
     Indication: COLITIS ULCERATIVE
     Dosage: 75 MG, DAILY
     Dates: start: 20031101, end: 20041002
  3. AMLODIPINE [Concomitant]
  4. PRAVASTATIN [Concomitant]
  5. FENIOFIBRATE (FENOFIBRATE) [Concomitant]
  6. LANSOPRAZOLE [Concomitant]
  7. ASPIRIN [Concomitant]
  8. PERINDOPRIL (PERINDOPRIL) [Concomitant]
  9. METFORMIN HCL [Concomitant]

REACTIONS (5)
  - FEELING ABNORMAL [None]
  - MALAISE [None]
  - MOUTH ULCERATION [None]
  - NEUTROPENIA [None]
  - VOMITING [None]
